FAERS Safety Report 9908089 (Version 1)
Quarter: 2013Q2

REPORT INFORMATION
  Report Type: Spontaneous
  Country: US (occurrence: None)
  Receive Date: 20130305
  Receipt Date: 20130305
  Transmission Date: 20140414
  Serious: Yes (Other)
  Sender: FDA-Public Use
  Company Number: 163-21880-12041835

PATIENT
  Age: 83 Year
  Sex: Male

DRUGS (13)
  1. REVLIMID [Suspect]
     Indication: PLASMA CELL MYELOMA
     Route: 048
     Dates: start: 20090212, end: 201204
  2. ALKERAN (MELPHALAN) [Concomitant]
  3. PREDNISONE (PREDNISONE) [Concomitant]
  4. CIPRO (CIPROFLOXACIN) [Concomitant]
  5. ARANESP (ALBUMIN FREE) (DARBEPOETIN ALFA) [Concomitant]
  6. NEUPOGEN (FILGRASTIM) [Concomitant]
  7. LACTULOSE (LACTULOSE) [Concomitant]
  8. DOCUSATE SODIUM (DOCUSATE SODIUM) [Concomitant]
  9. CALCIUM +D (OS-CAL) [Concomitant]
  10. TEMAZEPAM (TEMAZEPAM) [Concomitant]
  11. CALCITONIN (SALMON) (CALCITONIN, SALMON) [Concomitant]
  12. BENAZEPRIL HCL (BENAZEPRIL HYDROCHLORIDE) [Concomitant]
  13. ZANTAC (RANITIDINE HYDROCHLORIDE) [Concomitant]

REACTIONS (4)
  - Anaemia [None]
  - Full blood count decreased [None]
  - White blood cell count decreased [None]
  - Protein total increased [None]
